FAERS Safety Report 5320171-2 (Version None)
Quarter: 2007Q2

REPORT INFORMATION
  Report Type: 
  Country: None (occurrence: None)
  Receive Date: 20070503
  Receipt Date: 20070425
  Transmission Date: 20071010
  Serious: Yes (Hospitalization)
  Sender: FDA-Public Use
  Company Number: 2007BI009242

PATIENT
  Age: 51 Year
  Sex: Female
  Weight: 49.8957 kg

DRUGS (1)
  1. NATALIZUMAB [Suspect]
     Indication: DRUG USE FOR UNKNOWN INDICATION
     Dosage: 300 MG; QM; IV
     Route: 042
     Dates: start: 20060926

REACTIONS (3)
  - INTERVERTEBRAL DISC PROTRUSION [None]
  - MUSCLE SPASMS [None]
  - PAIN [None]
